FAERS Safety Report 9278968 (Version 1)
Quarter: 2013Q2

REPORT INFORMATION
  Report Type: Spontaneous
  Country: US (occurrence: US)
  Receive Date: 20130508
  Receipt Date: 20130517
  Transmission Date: 20140414
  Serious: Yes (Death, Life-Threatening, Other)
  Sender: FDA-Public Use
  Company Number: US-JNJFOC-20130502327

PATIENT
  Age: 23 Year
  Sex: Female

DRUGS (8)
  1. CETIRIZINE HYDROCHLORIDE [Suspect]
     Route: 048
  2. CETIRIZINE HYDROCHLORIDE [Suspect]
     Indication: SUICIDE ATTEMPT
     Route: 048
  3. MUCINEX [Suspect]
     Indication: SUICIDE ATTEMPT
     Route: 048
  4. ZOLOFT [Suspect]
     Indication: SUICIDE ATTEMPT
  5. ETHANOL [Suspect]
     Indication: SUICIDE ATTEMPT
     Route: 048
  6. ATROPINE [Concomitant]
     Indication: SINUS BRADYCARDIA
     Dosage: TWO DOSE OF 0.5 MG
     Route: 042
  7. EPINEPHRINE [Concomitant]
     Indication: PRODUCT USED FOR UNKNOWN INDICATION
     Dosage: 1ST TWO UNKNOWN DOSE AND LAST DOSE OF 1.0 MG
     Route: 042
  8. LIDOCAINE [Concomitant]
     Indication: PRODUCT USED FOR UNKNOWN INDICATION

REACTIONS (18)
  - Death [Fatal]
  - Completed suicide [Fatal]
  - Ventricular fibrillation [Unknown]
  - Cardiac arrest [Unknown]
  - Depressed level of consciousness [Unknown]
  - Overdose [Unknown]
  - Unresponsive to stimuli [Unknown]
  - Hypopnoea [Unknown]
  - Sinus bradycardia [Unknown]
  - Vomiting [Unknown]
  - Dysarthria [Unknown]
  - Sinus tachycardia [None]
  - Atelectasis [None]
  - Pulmonary fibrosis [None]
  - Hepatic congestion [None]
  - Renal venous congestion [None]
  - Alcohol poisoning [None]
  - Asphyxia [None]
